FAERS Safety Report 20515879 (Version 2)
Quarter: 2022Q1

REPORT INFORMATION
  Report Type: Spontaneous
  Country: DE (occurrence: DE)
  Receive Date: 20220225
  Receipt Date: 20220322
  Transmission Date: 20220423
  Serious: Yes (Hospitalization, Other)
  Sender: FDA-Public Use
  Company Number: DE-TEVA-2022-DE-2007003

PATIENT
  Age: 52 Year
  Sex: Male

DRUGS (4)
  1. LERCANIDIPINE [Suspect]
     Active Substance: LERCANIDIPINE
     Indication: Hypertension
     Dosage: 20 MILLIGRAM
     Route: 065
  2. RAMIPRIL [Suspect]
     Active Substance: RAMIPRIL
     Indication: Hypertension
     Dosage: 5 MILLIGRAM
     Route: 065
  3. COPAXONE [Suspect]
     Active Substance: GLATIRAMER ACETATE
     Indication: Multiple sclerosis
     Dosage: 20 MILLIGRAM, ONCE A DAY
     Route: 065
     Dates: start: 20030409
  4. CLONIDINE [Suspect]
     Active Substance: CLONIDINE
     Indication: Hypertension
     Dosage: UNK
     Route: 065

REACTIONS (4)
  - Syncope [Recovered/Resolved]
  - Overweight [Unknown]
  - Hypertension [Unknown]
  - Emotional distress [Not Recovered/Not Resolved]

NARRATIVE: CASE EVENT DATE: 20211201
